FAERS Safety Report 15641260 (Version 2)
Quarter: 2019Q1

REPORT INFORMATION
  Report Type: Spontaneous
  Country: US (occurrence: US)
  Receive Date: 20181120
  Receipt Date: 20190117
  Transmission Date: 20190417
  Serious: Yes (Other)
  Sender: FDA-Public Use
  Company Number: US-BAUSCH-BL-2018-030755

PATIENT
  Sex: Female

DRUGS (5)
  1. MESTINON [Suspect]
     Active Substance: PYRIDOSTIGMINE BROMIDE
     Indication: MYASTHENIA GRAVIS
     Route: 048
     Dates: start: 2008
  2. MESTINON [Suspect]
     Active Substance: PYRIDOSTIGMINE BROMIDE
     Dosage: 6 TO 7 TABLETS PER DAY
     Route: 048
     Dates: start: 2018
  3. HYDROCODONE [Concomitant]
     Active Substance: HYDROCODONE
     Indication: PRODUCT USED FOR UNKNOWN INDICATION
  4. APAP [Concomitant]
     Active Substance: ACETAMINOPHEN
     Indication: PRODUCT USED FOR UNKNOWN INDICATION
  5. MESTINON [Suspect]
     Active Substance: PYRIDOSTIGMINE BROMIDE
     Route: 048
     Dates: start: 20180916, end: 20181016

REACTIONS (7)
  - Product physical issue [Recovered/Resolved]
  - Sarcoidosis [Not Recovered/Not Resolved]
  - Malaise [Unknown]
  - Mitochondrial cytopathy [Not Recovered/Not Resolved]
  - Drug effect incomplete [Recovered/Resolved]
  - Product quality issue [Recovered/Resolved]
  - Central nervous system lesion [Not Recovered/Not Resolved]

NARRATIVE: CASE EVENT DATE: 2016
